FAERS Safety Report 19149302 (Version 2)
Quarter: 2021Q2

REPORT INFORMATION
  Report Type: Spontaneous
  Country: US (occurrence: US)
  Receive Date: 20210416
  Receipt Date: 20210602
  Transmission Date: 20210717
  Serious: Yes (Other)
  Sender: FDA-Public Use
  Company Number: US-PFIZER INC-2021403321

PATIENT
  Age: 48 Year
  Sex: Female
  Weight: 74.84 kg

DRUGS (3)
  1. FENTANYL CITRATE. [Suspect]
     Active Substance: FENTANYL CITRATE
     Indication: ANAESTHESIA
     Dosage: 100 UG, SINGLE
     Route: 040
     Dates: start: 20210317, end: 20210317
  2. PROPOFOL. [Suspect]
     Active Substance: PROPOFOL
     Indication: ANAESTHESIA
     Dosage: 100 MG (ONE TIME)
     Route: 040
     Dates: start: 20210317, end: 20210317
  3. VERSED [Suspect]
     Active Substance: MIDAZOLAM HYDROCHLORIDE
     Indication: ANAESTHESIA
     Dosage: 1 MG (1MG SUBCUTANEOUS ONE TIME)
     Route: 040
     Dates: start: 20210317, end: 20210317

REACTIONS (7)
  - Insomnia [Unknown]
  - Infusion site extravasation [Not Recovered/Not Resolved]
  - Blister [Not Recovered/Not Resolved]
  - Erythema [Recovering/Resolving]
  - Wound [Not Recovered/Not Resolved]
  - Ulcer [Not Recovered/Not Resolved]
  - Sensitive skin [Unknown]

NARRATIVE: CASE EVENT DATE: 2021
